FAERS Safety Report 21968513 (Version 2)
Quarter: 2023Q1

REPORT INFORMATION
  Report Type: Spontaneous
  Country: US (occurrence: None)
  Receive Date: 20230208
  Receipt Date: 20230310
  Transmission Date: 20230418
  Serious: Yes (Other)
  Sender: FDA-Public Use
  Company Number: 2023A026653

PATIENT
  Sex: Male
  Weight: 80.1 kg

DRUGS (7)
  1. TAGRISSO [Suspect]
     Active Substance: OSIMERTINIB
     Indication: Lung neoplasm malignant
     Route: 048
     Dates: start: 202103
  2. TAGRISSO [Suspect]
     Active Substance: OSIMERTINIB
     Indication: Lung neoplasm malignant
     Route: 048
     Dates: start: 20210428
  3. ELIQUIS [Concomitant]
     Active Substance: APIXABAN
     Dosage: 2.5 MG, TAKE ONE TABLET BY MOUTH TWICE A DAY
     Route: 048
     Dates: start: 20220826
  4. CALTRATE [Concomitant]
     Active Substance: CALCIUM CARBONATE
     Dosage: 600 MG CALCIUM-20 MCG (800 UNIT) CHEW 1 TABLET BY ORAL ROUTE 2 TIMES EVERY DAY
     Route: 048
  5. PEPCID AC [Concomitant]
     Active Substance: FAMOTIDINE
     Dosage: 10 MG, TAKE 1 TABLET BY ORAL ROUTE EVERY BEDTIME
     Route: 048
  6. SIMPLY SLEEP [Concomitant]
     Active Substance: DIPHENHYDRAMINE HYDROCHLORIDE
     Dosage: 25MG, TAKE 1 TABLET BY ORAL ROUTE EVERY EVENING AT BEDTIME FOR SLEEP
     Route: 048
  7. VITAMIN D3 [Concomitant]
     Active Substance: CHOLECALCIFEROL
     Dosage: 10 MCG (400 UNIT) TAKE 1 /2 TABLET BY ORAL ROUTE EVERY DAY
     Route: 048

REACTIONS (7)
  - Metastases to central nervous system [Unknown]
  - Haematuria [Unknown]
  - Dizziness [Unknown]
  - Asthenia [Unknown]
  - Memory impairment [Unknown]
  - Fatigue [Unknown]
  - Overdose [Unknown]
